FAERS Safety Report 6409316-0 (Version None)
Quarter: 2009Q4

REPORT INFORMATION
  Report Type: 
  Country: None (occurrence: None)
  Receive Date: 20091019
  Receipt Date: 20091019
  Transmission Date: 20100525
  Serious: Yes (Life-Threatening)
  Sender: FDA-Public Use
  Company Number: None

PATIENT
  Age: 64 Year
  Sex: Female
  Weight: 60.9 kg

DRUGS (9)
  1. TEMOZOLOMIDE [Suspect]
     Dosage: 120 QD ORAL
     Route: 048
     Dates: start: 20090803, end: 20090914
  2. TEMOZOLOMIDE [Suspect]
  3. ATIVAN [Concomitant]
  4. BACTRIM [Concomitant]
  5. CELEXA [Concomitant]
  6. DECADRON [Concomitant]
  7. RITALIN [Concomitant]
  8. ZANTAC [Concomitant]
  9. ZOFRAN [Concomitant]

REACTIONS (4)
  - ASTHENIA [None]
  - FATIGUE [None]
  - LYMPHOPENIA [None]
  - NEUTROPENIA [None]
